FAERS Safety Report 9779143 (Version 2)
Quarter: 2014Q2

REPORT INFORMATION
  Report Type: Spontaneous
  Country: US (occurrence: US)
  Receive Date: 20131223
  Receipt Date: 20140602
  Transmission Date: 20141212
  Serious: Yes (Hospitalization)
  Sender: FDA-Public Use
  Company Number: US-B.I. PHARMACEUTICALS,INC./RIDGEFIELD-2013-BI-43287BP

PATIENT
  Age: 81 Year
  Sex: Female
  Weight: 81.65 kg

DRUGS (21)
  1. PRADAXA [Suspect]
     Indication: ANTICOAGULANT THERAPY
     Route: 065
     Dates: start: 20110518, end: 20110817
  2. BONIVA [Concomitant]
     Route: 065
     Dates: start: 2010
  3. ASPIRIN [Concomitant]
     Route: 065
  4. CARDIZEM [Concomitant]
     Route: 065
     Dates: start: 2011
  5. CATAPRES [Concomitant]
     Route: 065
     Dates: start: 2010
  6. CRESTOR [Concomitant]
     Route: 065
  7. FOLIC ACID [Concomitant]
     Route: 065
     Dates: start: 2010
  8. LASIX [Concomitant]
     Dosage: FORMULATION: PATCH
     Dates: start: 2011
  9. LIDODERM PATCH [Concomitant]
     Route: 065
  10. MAGNESIUM [Concomitant]
     Route: 065
  11. MOBIC [Concomitant]
     Route: 065
     Dates: start: 2010
  12. NEURONTIN [Concomitant]
     Route: 065
     Dates: start: 2010
  13. OS-CAL 500 PLUS 200 UNITS VITAMIN D [Concomitant]
     Dosage: DOSE PER APPLICATION:500/200
     Route: 065
  14. KLOR-CON [Concomitant]
     Route: 065
     Dates: start: 2011
  15. VICODIN [Concomitant]
     Route: 065
     Dates: start: 2010
  16. ZAROXOLYN [Concomitant]
     Route: 065
  17. COREG [Concomitant]
     Route: 065
     Dates: start: 2000
  18. LOSTARTAN [Concomitant]
     Route: 065
     Dates: start: 2011
  19. NEXIUM [Concomitant]
     Route: 065
     Dates: start: 2010
  20. METOLAZONE [Concomitant]
     Route: 065
     Dates: start: 2011
  21. LOVAZA [Concomitant]
     Route: 065
     Dates: start: 2010

REACTIONS (1)
  - Gastrointestinal haemorrhage [Unknown]
